FAERS Safety Report 18147295 (Version 1)
Quarter: 2020Q3

REPORT INFORMATION
  Report Type: Spontaneous
  Country: IT (occurrence: IT)
  Receive Date: 20200814
  Receipt Date: 20200814
  Transmission Date: 20201103
  Serious: Yes (Other)
  Sender: FDA-Public Use
  Company Number: IT-LUPIN PHARMACEUTICALS INC.-2020-04519

PATIENT
  Age: 80 Year
  Sex: Female

DRUGS (2)
  1. ETACORTILEN [Concomitant]
     Indication: BLEPHARITIS
     Dosage: UNK
     Route: 065
  2. BETAMETHASONE. [Suspect]
     Active Substance: BETAMETHASONE
     Indication: BLEPHARITIS
     Dosage: UNK, 4 MG/2 ML
     Route: 030

REACTIONS (1)
  - Acute generalised exanthematous pustulosis [Recovered/Resolved]
